FAERS Safety Report 12195550 (Version 3)
Quarter: 2016Q3

REPORT INFORMATION
  Report Type: Spontaneous
  Country: CN (occurrence: CN)
  Receive Date: 20160321
  Receipt Date: 20160819
  Transmission Date: 20161109
  Serious: Yes (Death, Other)
  Sender: FDA-Public Use
  Company Number: CN-WATSON-2016-05865

PATIENT
  Age: 46 Year
  Sex: Male

DRUGS (6)
  1. METHOTREXATE (METHOTREXATE SODIUM) [Suspect]
     Active Substance: METHOTREXATE SODIUM
     Indication: SMALL CELL LUNG CANCER
     Dosage: UNK
     Route: 037
  2. ETOPOSIDE (UNKNOWN) [Suspect]
     Active Substance: ETOPOSIDE
     Indication: SMALL CELL LUNG CANCER
     Dosage: SINGLE CYCLE
     Route: 048
  3. GEFITINIB [Concomitant]
     Active Substance: GEFITINIB
     Indication: SMALL CELL LUNG CANCER
     Dosage: UNK
     Route: 065
  4. MANNITOL. [Concomitant]
     Active Substance: MANNITOL
     Indication: INTRACRANIAL PRESSURE INCREASED
     Dosage: EVERY 6 HOURS
     Route: 065
  5. PEMETREXED [Concomitant]
     Active Substance: PEMETREXED
     Indication: SMALL CELL LUNG CANCER
     Dosage: 4 CYCLES
     Route: 065
     Dates: end: 201406
  6. ERLOTINIB [Concomitant]
     Active Substance: ERLOTINIB
     Indication: SMALL CELL LUNG CANCER
     Dosage: UNK
     Route: 065

REACTIONS (5)
  - Lung infection [Fatal]
  - Gastrointestinal haemorrhage [Unknown]
  - Bone marrow failure [Fatal]
  - Nosocomial infection [Fatal]
  - Liver injury [Recovered/Resolved]

NARRATIVE: CASE EVENT DATE: 20141221
